FAERS Safety Report 22014895 (Version 1)
Quarter: 2023Q1

REPORT INFORMATION
  Report Type: Spontaneous
  Country: US (occurrence: None)
  Receive Date: 20230221
  Receipt Date: 20230221
  Transmission Date: 20230417
  Serious: No
  Sender: FDA-Public Use
  Company Number: 2023A041053

PATIENT
  Sex: Male

DRUGS (2)
  1. DALIRESP [Suspect]
     Active Substance: ROFLUMILAST
     Indication: Chronic obstructive pulmonary disease
     Route: 048
  2. DALIRESP [Suspect]
     Active Substance: ROFLUMILAST
     Indication: Injury
     Route: 048

REACTIONS (1)
  - Dyspnoea [Unknown]
